FAERS Safety Report 5079865-9 (Version None)
Quarter: 2006Q3

REPORT INFORMATION
  Report Type: 
  Country: None (occurrence: None)
  Receive Date: 20060809
  Receipt Date: 20060803
  Transmission Date: 20061208
  Serious: Yes (Death)
  Sender: FDA-Public Use
  Company Number: OPER20060001

PATIENT
  Sex: Male

DRUGS (1)
  1. OPANA ER [Suspect]
     Dosage: IN
     Route: 055
     Dates: start: 20060801, end: 20060801

REACTIONS (3)
  - DRUG ABUSER [None]
  - INCORRECT ROUTE OF DRUG ADMINISTRATION [None]
  - OVERDOSE [None]
